FAERS Safety Report 6434064-0 (Version None)
Quarter: 2009Q4

REPORT INFORMATION
  Report Type: 
  Country: None (occurrence: None)
  Receive Date: 20091110
  Receipt Date: 20091103
  Transmission Date: 20100525
  Serious: Yes (Hospitalization)
  Sender: FDA-Public Use
  Company Number: US-ASTRAZENECA-2009SE24571

PATIENT
  Age: 986 Month
  Sex: Female
  Weight: 71.7 kg

DRUGS (3)
  1. CRESTOR [Suspect]
     Indication: BLOOD CHOLESTEROL
     Route: 048
     Dates: start: 20070101
  2. NEXIUM [Suspect]
     Indication: GASTROOESOPHAGEAL REFLUX DISEASE
     Route: 048
     Dates: start: 20060101
  3. ETODOLAC [Concomitant]
     Indication: ARTHRITIS
     Route: 048

REACTIONS (4)
  - DYSPNOEA [None]
  - FATIGUE [None]
  - MYALGIA [None]
  - RECTAL HAEMORRHAGE [None]
